FAERS Safety Report 18659798 (Version 1)
Quarter: 2020Q4

REPORT INFORMATION
  Report Type: Spontaneous
  Country: US (occurrence: US)
  Receive Date: 20201223
  Receipt Date: 20201223
  Transmission Date: 20210114
  Serious: Yes (Hospitalization)
  Sender: FDA-Public Use
  Company Number: US-PAIPHARMA-2020-US-025652

PATIENT
  Age: 74 Year
  Sex: Female
  Weight: 83.46 kg

DRUGS (9)
  1. FUROSEMIDE. [Concomitant]
     Active Substance: FUROSEMIDE
  2. PROPRANOLOL [Concomitant]
     Active Substance: PROPRANOLOL HYDROCHLORIDE
  3. RIFAXIMIN. [Concomitant]
     Active Substance: RIFAXIMIN
  4. LACTULOSE SOLUTION USP, AF [Suspect]
     Active Substance: LACTULOSE
     Indication: ENCEPHALOPATHY
     Dosage: 30 MILLILITERS THREE TIMES DAILY
     Route: 048
     Dates: start: 20200623
  5. PRIMIDONE. [Concomitant]
     Active Substance: PRIMIDONE
  6. SPIRONOLACTONE. [Concomitant]
     Active Substance: SPIRONOLACTONE
  7. DICYCLOMINE [Concomitant]
     Active Substance: DICYCLOMINE HYDROCHLORIDE
  8. PANTOPRAZOLE [Concomitant]
     Active Substance: PANTOPRAZOLE
  9. TOPIRAMATE. [Concomitant]
     Active Substance: TOPIRAMATE

REACTIONS (6)
  - Diarrhoea [Unknown]
  - Haematemesis [Unknown]
  - Ammonia increased [Unknown]
  - Product use issue [Unknown]
  - Varices oesophageal [Unknown]
  - Product use in unapproved indication [Unknown]

NARRATIVE: CASE EVENT DATE: 20200623
